FAERS Safety Report 15517004 (Version 2)
Quarter: 2019Q2

REPORT INFORMATION
  Report Type: Report from Study
  Country: CA (occurrence: CA)
  Receive Date: 20181017
  Receipt Date: 20190401
  Transmission Date: 20190711
  Serious: Yes (Hospitalization)
  Sender: FDA-Public Use
  Company Number: CA-EISAI MEDICAL RESEARCH-EC-2017-024124

PATIENT
  Age: 80 Year
  Sex: Female

DRUGS (15)
  1. LENVIMA [Suspect]
     Active Substance: LENVATINIB
     Route: 048
     Dates: start: 2017
  2. CALCIUM [Concomitant]
     Active Substance: CALCIUM
  3. LENVIMA [Suspect]
     Active Substance: LENVATINIB
     Route: 048
     Dates: start: 2018, end: 201810
  4. LENVIMA [Suspect]
     Active Substance: LENVATINIB
     Route: 048
  5. ATIVAN [Concomitant]
     Active Substance: LORAZEPAM
  6. DEXILANT [Concomitant]
     Active Substance: DEXLANSOPRAZOLE
  7. LENVIMA [Suspect]
     Active Substance: LENVATINIB
     Indication: THYROID CANCER
     Route: 048
     Dates: start: 20170114, end: 20170221
  8. CITALOPRAM [Concomitant]
     Active Substance: CITALOPRAM HYDROBROMIDE
  9. LIPITOR [Concomitant]
     Active Substance: ATORVASTATIN CALCIUM
  10. LENVIMA [Suspect]
     Active Substance: LENVATINIB
     Route: 048
     Dates: end: 2018
  11. SYNTHROID [Concomitant]
     Active Substance: LEVOTHYROXINE SODIUM
  12. IRBESARTAN. [Concomitant]
     Active Substance: IRBESARTAN
  13. LENVIMA [Suspect]
     Active Substance: LENVATINIB
     Dosage: 24 MG (ONE WEEK ON AND ONE WEEK OFF)
     Route: 048
     Dates: start: 20170222, end: 2017
  14. LENVIMA [Suspect]
     Active Substance: LENVATINIB
     Route: 048
     Dates: start: 20190315
  15. VITAMIN B [Concomitant]
     Active Substance: VITAMIN B

REACTIONS (12)
  - Hemiplegia [Unknown]
  - Ophthalmic vein thrombosis [Not Recovered/Not Resolved]
  - Erythema [Unknown]
  - Mass [Unknown]
  - Speech disorder [Unknown]
  - Aphasia [Unknown]
  - Peripheral swelling [Unknown]
  - Blood pressure increased [Unknown]
  - Headache [Not Recovered/Not Resolved]
  - Decreased interest [Not Recovered/Not Resolved]
  - Cerebrovascular accident [Unknown]
  - Malignant neoplasm progression [Unknown]

NARRATIVE: CASE EVENT DATE: 2017
